FAERS Safety Report 6040480-1 (Version None)
Quarter: 2009Q1

REPORT INFORMATION
  Report Type: 
  Country: None (occurrence: None)
  Receive Date: 20090116
  Receipt Date: 20080409
  Transmission Date: 20090719
  Serious: No
  Sender: FDA-Public Use
  Company Number: US-BRISTOL-MYERS SQUIBB COMPANY-14116628

PATIENT
  Age: 7 Year
  Sex: Female

DRUGS (1)
  1. ABILIFY [Suspect]
     Indication: MOOD SWINGS
     Dosage: DISCONTINUED ON 27-FEB-08,RESTARTED ABILIFY ON 1-MAR-2008.DISCONTINUED AGAIN ON 14-MAR-2008.
     Route: 048
     Dates: start: 20080218, end: 20080314

REACTIONS (1)
  - EPISTAXIS [None]
